FAERS Safety Report 11111701 (Version 4)
Quarter: 2015Q3

REPORT INFORMATION
  Report Type: Spontaneous
  Country: US (occurrence: US)
  Receive Date: 20150514
  Receipt Date: 20150828
  Transmission Date: 20151125
  Serious: No
  Sender: FDA-Public Use
  Company Number: US-009507513-1505USA004013

PATIENT
  Age: 22 Year
  Sex: Female
  Weight: 59.41 kg

DRUGS (2)
  1. QUETIAPINE FUMARATE. [Concomitant]
     Active Substance: QUETIAPINE FUMARATE
     Indication: DEPRESSION
     Dosage: UNK
     Dates: start: 2013, end: 201310
  2. NEXPLANON [Suspect]
     Active Substance: ETONOGESTREL
     Indication: CONTRACEPTION
     Dosage: 68 MG, UNK, FIRST IMPLANT
     Route: 059
     Dates: start: 20131024

REACTIONS (4)
  - Implant site swelling [Not Recovered/Not Resolved]
  - Implant site pruritus [Unknown]
  - Device deployment issue [Not Recovered/Not Resolved]
  - Implant site irritation [Not Recovered/Not Resolved]

NARRATIVE: CASE EVENT DATE: 20131024
